FAERS Safety Report 6912268-8 (Version None)
Quarter: 2010Q3

REPORT INFORMATION
  Report Type: 
  Country: None (occurrence: None)
  Receive Date: 20100806
  Receipt Date: 20080519
  Transmission Date: 20110219
  Serious: No
  Sender: FDA-Public Use
  Company Number: US-PFIZER INC-2008028334

PATIENT
  Sex: Female
  Weight: 109.09 kg

DRUGS (12)
  1. DETROL LA [Suspect]
     Indication: HYPERTONIC BLADDER
     Dates: start: 20080301
  2. ACTOS [Concomitant]
  3. SYNTHROID [Concomitant]
  4. NEXIUM [Concomitant]
  5. GLUCOTROL [Concomitant]
  6. METFORMIN HCL [Concomitant]
  7. NORVASC [Concomitant]
  8. AVALIDE [Concomitant]
  9. METOPROLOL [Concomitant]
  10. CYMBALTA [Concomitant]
  11. CELEBREX [Concomitant]
  12. GABAPENTIN [Concomitant]

REACTIONS (2)
  - DRY MOUTH [None]
  - HEADACHE [None]
